FAERS Safety Report 6679678 (Version 14)
Quarter: 2013Q2

REPORT INFORMATION
  Report Type: Spontaneous
  Country: US (occurrence: US)
  Receive Date: 20080624
  Receipt Date: 20130524
  Transmission Date: 20140414
  Serious: Yes (Life-Threatening, Hospitalization, Congenital Anomaly, Other)
  Sender: FDA-Public Use
  Company Number: US-PFIZER INC-2008049872

PATIENT
  Sex: Male
  Weight: 4 kg

DRUGS (6)
  1. ZOLOFT [Suspect]
     Indication: DEPRESSION
     Dosage: 50 MG, UNK
     Route: 064
     Dates: start: 2004
  2. ZOLOFT [Suspect]
     Indication: ANXIETY
  3. EFFEXOR XR [Suspect]
     Indication: DEPRESSION
     Dosage: 150 MG, UNK
     Route: 064
     Dates: start: 2004, end: 200412
  4. EFFEXOR XR [Suspect]
     Indication: ANXIETY
  5. EFFEXOR [Suspect]
     Dosage: UNK
     Route: 064
  6. VENLAFAXINE HCL [Suspect]
     Dosage: UNK
     Route: 064

REACTIONS (5)
  - Foetal exposure during pregnancy [Unknown]
  - Hypoplastic left heart syndrome [Unknown]
  - Atrial septal defect [Unknown]
  - Mitral valve incompetence [Unknown]
  - Renal impairment [Unknown]
